FAERS Safety Report 10020661 (Version 1)
Quarter: 2014Q1

REPORT INFORMATION
  Report Type: Spontaneous
  Country: DK (occurrence: DK)
  Receive Date: 20140319
  Receipt Date: 20140319
  Transmission Date: 20141002
  Serious: Yes (Hospitalization)
  Sender: FDA-Public Use
  Company Number: DK-ACCORD-022486

PATIENT
  Sex: Female

DRUGS (2)
  1. LEVETIRACETAM [Suspect]
     Indication: EPILEPSY
     Route: 048
  2. ZEBINIX [Interacting]
     Indication: EPILEPSY
     Route: 048

REACTIONS (3)
  - Convulsion [Unknown]
  - Hyponatraemia [Unknown]
  - Drug interaction [Unknown]
